FAERS Safety Report 5626646-0 (Version None)
Quarter: 2008Q1

REPORT INFORMATION
  Report Type: 
  Country: None (occurrence: None)
  Receive Date: 20080214
  Receipt Date: 20080207
  Transmission Date: 20080703
  Serious: Yes (Hospitalization)
  Sender: FDA-Public Use
  Company Number: US-BOEHRINGER INGELHEIM GMBH, GERMANY-2008-BP-00254BP

PATIENT
  Sex: Female

DRUGS (8)
  1. SPIRIVA [Suspect]
     Indication: DYSPNOEA
     Route: 055
  2. SPIRIVA [Suspect]
     Indication: CHRONIC OBSTRUCTIVE PULMONARY DISEASE
  3. JANTOVEN [Concomitant]
  4. ALBUTEROL [Concomitant]
     Route: 055
  5. LABETALOL HCL [Concomitant]
  6. PRILOSEC [Concomitant]
  7. ALDACTAONE [Concomitant]
  8. TRAZODONE HCL [Concomitant]

REACTIONS (1)
  - HYPERTENSION [None]
